FAERS Safety Report 9355605 (Version 1)
Quarter: 2013Q2

REPORT INFORMATION
  Report Type: Spontaneous
  Country: US (occurrence: US)
  Receive Date: 20130619
  Receipt Date: 20130619
  Transmission Date: 20140414
  Serious: Yes (Other)
  Sender: FDA-Public Use
  Company Number: US-ASTELLAS-2013US006337

PATIENT
  Sex: Female

DRUGS (2)
  1. PROTOPIC [Suspect]
     Indication: DERMATITIS CONTACT
     Dosage: UNK
     Route: 061
  2. PROTOPIC [Suspect]
     Indication: ECZEMA

REACTIONS (4)
  - Convulsion [Unknown]
  - Loss of consciousness [Unknown]
  - Visual impairment [Unknown]
  - Migraine [Unknown]
